FAERS Safety Report 5959245-1 (Version None)
Quarter: 2008Q4

REPORT INFORMATION
  Report Type: 
  Country: None (occurrence: None)
  Receive Date: 20081120
  Receipt Date: 20080922
  Transmission Date: 20090506
  Serious: No
  Sender: FDA-Public Use
  Company Number: A0749513A

PATIENT
  Age: 34 Year
  Sex: Female

DRUGS (2)
  1. WELLBUTRIN SR [Suspect]
     Indication: DEPRESSION
     Route: 048
     Dates: start: 20080901, end: 20080921
  2. NONE [Concomitant]

REACTIONS (1)
  - DRUG INEFFECTIVE [None]
